FAERS Safety Report 11927384 (Version 1)
Quarter: 2016Q1

REPORT INFORMATION
  Report Type: Spontaneous
  Country: US (occurrence: None)
  Receive Date: 20160115
  Receipt Date: 20160115
  Transmission Date: 20160526
  Serious: Yes (Disabling, Other)
  Sender: FDA-Public Use
  Company Number: None

PATIENT
  Age: 74 Year
  Sex: Female
  Weight: 113.4 kg

DRUGS (11)
  1. LEVOTHYROXINE. [Concomitant]
     Active Substance: LEVOTHYROXINE
  2. ASPIRIN. [Concomitant]
     Active Substance: ASPIRIN
  3. PROGESTERONE. [Concomitant]
     Active Substance: PROGESTERONE
  4. COQ10 [Concomitant]
     Active Substance: UBIDECARENONE
  5. MULTIPLE VITAMIN-MINERAL FORMULA [Concomitant]
  6. OMEGA 3 [Concomitant]
     Active Substance: OMEGA-3 FATTY ACIDS
  7. IODINE FORMULA FILLED SWAB [Concomitant]
     Active Substance: POVIDONE-IODINE
  8. ARMOUR THYROID [Suspect]
     Active Substance: THYROID, PORCINE
     Indication: HYPOTHYROIDISM
     Route: 048
  9. ASTAXANTHIN [Concomitant]
  10. C-PAP MACHINE [Concomitant]
     Active Substance: DEVICE
  11. ESTRADIOL. [Concomitant]
     Active Substance: ESTRADIOL

REACTIONS (10)
  - Diarrhoea [None]
  - Drug ineffective [None]
  - Lip swelling [None]
  - Product substitution issue [None]
  - Rash erythematous [None]
  - Burning sensation [None]
  - Urticaria [None]
  - Swelling [None]
  - Eye swelling [None]
  - Pain [None]

NARRATIVE: CASE EVENT DATE: 20140801
